FAERS Safety Report 17051172 (Version 3)
Quarter: 2020Q1

REPORT INFORMATION
  Report Type: Spontaneous
  Country: JP (occurrence: JP)
  Receive Date: 20191120
  Receipt Date: 20200128
  Transmission Date: 20200409
  Serious: Yes (Other)
  Sender: FDA-Public Use
  Company Number: JP-AMGEN-JPNSP2019192009

PATIENT
  Age: 82 Year
  Sex: Female
  Weight: 38 kg

DRUGS (2)
  1. ALENDRONATE SODIUM HYDRATE [Suspect]
     Active Substance: ALENDRONATE SODIUM
     Indication: OSTEOPOROSIS
     Dosage: UNK
     Route: 048
     Dates: start: 2013
  2. PRALIA [Suspect]
     Active Substance: DENOSUMAB
     Indication: OSTEOPOROSIS
     Dosage: 120 MILLIGRAM
     Route: 058
     Dates: start: 20160614, end: 201712

REACTIONS (2)
  - Osteonecrosis of jaw [Recovered/Resolved]
  - Tertiary syphilis [Recovered/Resolved]

NARRATIVE: CASE EVENT DATE: 201703
